FAERS Safety Report 23760538 (Version 1)
Quarter: 2024Q2

REPORT INFORMATION
  Report Type: Spontaneous
  Country: SE (occurrence: SE)
  Receive Date: 20240419
  Receipt Date: 20240419
  Transmission Date: 20240716
  Serious: Yes (Hospitalization, Other)
  Sender: FDA-Public Use
  Company Number: None

PATIENT
  Age: 50 Year
  Sex: Female
  Weight: 124 kg

DRUGS (14)
  1. QUETIAPINE FUMARATE [Suspect]
     Active Substance: QUETIAPINE FUMARATE
     Indication: Product used for unknown indication
     Dosage: UNK, UNK
     Route: 065
  2. LAMOTRIGINE [Suspect]
     Active Substance: LAMOTRIGINE
     Indication: Product used for unknown indication
  3. LITHIUM SULFATE [Suspect]
     Active Substance: LITHIUM SULFATE
     Indication: Bipolar disorder
     Dosage: UNK, 2 TIMES PER DAY, 2 TABLETS EVERY MORNING.  2 TABLETS EVERY OTHER NIGHT AND 3 TABLETS EVERY OTHE
     Route: 048
     Dates: start: 20230815, end: 20231206
  4. LITHIUM SULFATE [Suspect]
     Active Substance: LITHIUM SULFATE
     Indication: Bipolar disorder
     Dosage: ON 01 SEP 2023 THE DOSE WAS CHANGED TO 2 X 2 DAILY WITH RE-SAMPLING AFTER ONE WEEK
     Route: 048
     Dates: start: 20230901
  5. LITHIUM SULFATE [Suspect]
     Active Substance: LITHIUM SULFATE
     Dosage: ON 24 OCT 2023 THE DOSE WAS INCREASE TO 2+0+3 TABLETS EVERY OTHER DAY  AND 2X2 TABLETS PER DAY EVERY
     Route: 048
     Dates: start: 20231024
  6. LITHIUM SULFATE [Suspect]
     Active Substance: LITHIUM SULFATE
     Dosage: ONE TABLET IN THE MORNING AND TWO TABLETS IN THE  EVENING
     Route: 048
     Dates: start: 20231212, end: 20231217
  7. ZOPICLONE [Concomitant]
     Active Substance: ZOPICLONE
     Indication: Product used for unknown indication
     Dosage: 1, AS NECESSARY (0.5 -1 IF NEEDED FOR THE NIGHT)
     Route: 048
     Dates: start: 2005
  8. ZOPICLONE [Concomitant]
     Active Substance: ZOPICLONE
     Indication: Sleep disorder
     Dosage: UNK
     Route: 065
  9. CALCIUM CARBONATE\CHOLECALCIFEROL [Concomitant]
     Active Substance: CALCIUM CARBONATE\CHOLECALCIFEROL
     Indication: Product used for unknown indication
     Dosage: 2 DOSAGE FORM, ONCE PER DAY (2 IN THE MORNING)
     Dates: start: 20090311
  10. FOLIC ACID [Concomitant]
     Active Substance: FOLIC ACID
     Indication: Product used for unknown indication
  11. FOLSYRA EVOLAN [Concomitant]
     Indication: Product used for unknown indication
     Dosage: 5 MG, ONCE PER DAY (1 AM)
     Dates: start: 20090311
  12. CHOLECALCIFEROL [Concomitant]
     Active Substance: CHOLECALCIFEROL
     Indication: Product used for unknown indication
     Dosage: 1600 IU,
     Route: 048
     Dates: start: 20130301
  13. CHOLECALCIFEROL [Concomitant]
     Active Substance: CHOLECALCIFEROL
     Dosage: 1600 IU ONCE PER DAY (2 IN THE MORNING)
     Route: 048
     Dates: start: 20130301
  14. CYANOCOBALAMIN [Concomitant]
     Active Substance: CYANOCOBALAMIN
     Indication: Product used for unknown indication
     Dosage: 1 MG, ONCE PER DAY (1 A.M.)
     Route: 048
     Dates: start: 20090311

REACTIONS (18)
  - Mastication disorder [Recovered/Resolved]
  - Dyskinesia [Recovered/Resolved]
  - Vertigo [Recovered/Resolved]
  - Diarrhoea [Recovered/Resolved]
  - Nausea [Recovered/Resolved]
  - Dizziness [Recovered/Resolved]
  - Dysphonia [Recovered/Resolved]
  - Toxicity to various agents [Recovered/Resolved]
  - Vomiting [Recovered/Resolved]
  - Tunnel vision [Recovered/Resolved]
  - Antipsychotic drug level increased [Not Recovered/Not Resolved]
  - Abdominal pain [Recovered/Resolved]
  - Hemiparesis [Recovered/Resolved]
  - Speech disorder [Recovered/Resolved]
  - Neurological symptom [Unknown]
  - Diplopia [Not Recovered/Not Resolved]
  - Dysphagia [Recovered/Resolved]
  - Gait disturbance [Recovered/Resolved]

NARRATIVE: CASE EVENT DATE: 20231125
